FAERS Safety Report 7005162-8 (Version None)
Quarter: 2010Q3

REPORT INFORMATION
  Report Type: 
  Country: None (occurrence: None)
  Receive Date: 20100917
  Receipt Date: 20100902
  Transmission Date: 20110219
  Serious: Yes (Hospitalization)
  Sender: FDA-Public Use
  Company Number: DSA_43877_2010

PATIENT
  Age: 76 Year
  Sex: Male

DRUGS (1)
  1. ENALAPRIL MALEATE [Suspect]
     Indication: HYPERTENSIVE CARDIOMYOPATHY
     Dosage: (DF ORAL)
     Route: 048
     Dates: start: 20100818, end: 20100824

REACTIONS (2)
  - PRURITUS [None]
  - RASH PAPULAR [None]
